FAERS Safety Report 9962945 (Version 2)
Quarter: 2014Q1

REPORT INFORMATION
  Report Type: Spontaneous
  Country: ES (occurrence: DE)
  Receive Date: 20140305
  Receipt Date: 20140326
  Transmission Date: 20141002
  Serious: Yes (Life-Threatening)
  Sender: FDA-Public Use
  Company Number: DE-FRI-1000054883

PATIENT
  Sex: Male
  Weight: 95 kg

DRUGS (9)
  1. ACLIDINIUM [Suspect]
     Dates: start: 20131118, end: 20140126
  2. VELMETIA [Concomitant]
     Indication: DIABETES MELLITUS
  3. BERODUAL [Concomitant]
     Indication: CHRONIC OBSTRUCTIVE PULMONARY DISEASE
  4. IBUPROFEN [Concomitant]
     Indication: BRONCHITIS
  5. AMLODIPINE [Concomitant]
     Indication: HYPERTENSION
  6. THEOPHYLLINE [Concomitant]
     Indication: CHRONIC OBSTRUCTIVE PULMONARY DISEASE
  7. NITROSPRAY [Concomitant]
     Indication: DYSPNOEA
  8. NITROSPRAY [Concomitant]
     Indication: ANGINA PECTORIS
  9. SITAGLIPTIN [Concomitant]
     Indication: DIABETES MELLITUS

REACTIONS (1)
  - Dyspnoea [Recovering/Resolving]
